FAERS Safety Report 7772836-0 (Version None)
Quarter: 2011Q3

REPORT INFORMATION
  Report Type: 
  Country: None (occurrence: None)
  Receive Date: 20110922
  Receipt Date: 20110217
  Transmission Date: 20111222
  Serious: No
  Sender: FDA-Public Use
  Company Number: US-ASTRAZENECA-2011SE09240

PATIENT
  Age: 37 Year
  Sex: Female
  Weight: 63.5 kg

DRUGS (4)
  1. SEROQUEL XR [Suspect]
     Indication: BIPOLAR DISORDER
     Route: 048
     Dates: start: 20080101
  2. PAXIL [Concomitant]
  3. XANAX [Concomitant]
  4. AMBIEN [Concomitant]

REACTIONS (4)
  - IMPAIRED WORK ABILITY [None]
  - FEELING ABNORMAL [None]
  - INSOMNIA [None]
  - DRUG DOSE OMISSION [None]
